FAERS Safety Report 9401030 (Version 1)
Quarter: 2013Q3

REPORT INFORMATION
  Report Type: Spontaneous
  Country: CH (occurrence: CH)
  Receive Date: 20130715
  Receipt Date: 20130715
  Transmission Date: 20140515
  Serious: Yes (Hospitalization)
  Sender: FDA-Public Use
  Company Number: CH-GLAXOSMITHKLINE-B0907820A

PATIENT
  Age: 8 Year
  Sex: Female
  Weight: 30 kg

DRUGS (10)
  1. VALTREX [Suspect]
     Indication: PRODUCT USED FOR UNKNOWN INDICATION
     Dosage: 500MG PER DAY
     Route: 048
     Dates: start: 201212, end: 20130424
  2. DIGOXIN [Suspect]
     Indication: ADENOVIRUS INFECTION
     Dosage: .1MG PER DAY
     Route: 048
     Dates: start: 201212
  3. NEXIUM [Suspect]
     Indication: PRODUCT USED FOR UNKNOWN INDICATION
     Dosage: 40MG PER DAY
     Route: 048
     Dates: start: 201212, end: 20130424
  4. ALDACTONE [Suspect]
     Indication: ADENOVIRUS INFECTION
     Dosage: 12.5MG PER DAY
     Route: 048
     Dates: start: 201212
  5. ESIDREX [Suspect]
     Indication: ADENOVIRUS INFECTION
     Dosage: 12.5MG PER DAY
     Route: 048
     Dates: start: 201212
  6. CARVEDILOL [Suspect]
     Indication: ADENOVIRUS INFECTION
     Dosage: 7MG PER DAY
     Route: 048
     Dates: start: 201212
  7. NOPIL FORTE [Suspect]
     Indication: ADENOVIRUS INFECTION
     Route: 048
     Dates: start: 201212, end: 20130424
  8. CLEXANE [Suspect]
     Indication: ADENOVIRUS INFECTION
     Dosage: 27MG PER DAY
     Route: 058
     Dates: start: 201212
  9. MAGNESIOCARD [Concomitant]
     Dosage: 5MMOL PER DAY
     Route: 048
     Dates: start: 201212, end: 20130424
  10. KALIUM [Concomitant]
     Dosage: 30MMOL PER DAY
     Route: 048
     Dates: start: 201212, end: 20130424

REACTIONS (1)
  - Pancytopenia [Recovered/Resolved]
